FAERS Safety Report 12227467 (Version 1)
Quarter: 2016Q1

REPORT INFORMATION
  Report Type: Report from Study
  Country: DE (occurrence: LB)
  Receive Date: 20160331
  Receipt Date: 20160331
  Transmission Date: 20160526
  Serious: Yes (Death, Life-Threatening, Hospitalization, Other)
  Sender: FDA-Public Use
  Company Number: DE-PFM-LB-2016-0530

PATIENT
  Age: 46 Year
  Sex: Female

DRUGS (6)
  1. NAVELBINE [Suspect]
     Active Substance: VINORELBINE TARTRATE
     Indication: BREAST CANCER METASTATIC
     Dosage: 35 MG, WEEKLY
     Route: 042
     Dates: start: 20121005, end: 20121012
  2. AFATINIB [Suspect]
     Active Substance: AFATINIB
     Indication: BREAST CANCER METASTATIC
     Dosage: 40 MG, QD (1/DAY)
     Route: 048
     Dates: start: 20121005, end: 20121017
  3. AFATINIB [Suspect]
     Active Substance: AFATINIB
     Dosage: 20 MG, DAILY DOSE
     Route: 065
  4. RISPERDAL [Concomitant]
     Active Substance: RISPERIDONE
     Indication: PRODUCT USED FOR UNKNOWN INDICATION
     Dosage: UNK
     Route: 065
     Dates: start: 20121019
  5. AFATINIB [Suspect]
     Active Substance: AFATINIB
     Dosage: 30 MG, DAILY DOSE
     Route: 065
  6. ANTENEX [Concomitant]
     Active Substance: DIAZEPAM
     Indication: PRODUCT USED FOR UNKNOWN INDICATION
     Dosage: UNK
     Route: 065
     Dates: start: 20121019

REACTIONS (4)
  - Neutropenia [Recovered/Resolved]
  - Acute kidney injury [Fatal]
  - Gastroenteritis [Not Recovered/Not Resolved]
  - Septic shock [Fatal]

NARRATIVE: CASE EVENT DATE: 20121011
